FAERS Safety Report 10484778 (Version 4)
Quarter: 2015Q1

REPORT INFORMATION
  Report Type: Spontaneous
  Country: US (occurrence: US)
  Receive Date: 20140930
  Receipt Date: 20150224
  Transmission Date: 20150720
  Serious: Yes (Other)
  Sender: FDA-Public Use
  Company Number: US-BAYER-2014-142047

PATIENT
  Age: 39 Year
  Sex: Female
  Weight: 111.57 kg

DRUGS (3)
  1. ZYRTEC [Concomitant]
     Active Substance: CETIRIZINE HYDROCHLORIDE
     Dosage: UNK
     Route: 048
     Dates: start: 20140910
  2. MELATONIN [Concomitant]
     Active Substance: MELATONIN
     Dosage: UNK
     Route: 048
     Dates: start: 20140910
  3. MIRENA [Suspect]
     Active Substance: LEVONORGESTREL
     Indication: CONTRACEPTION
     Dosage: 20 MCG/24HR, CONT
     Route: 015
     Dates: start: 20090915, end: 20140910

REACTIONS (10)
  - Device breakage [None]
  - Procedural pain [None]
  - Device difficult to use [None]
  - Pain [None]
  - Cyst rupture [None]
  - Embedded device [Recovered/Resolved]
  - Genital haemorrhage [None]
  - Complication of device removal [None]
  - Abdominal pain lower [None]
  - Injury [Recovered/Resolved]

NARRATIVE: CASE EVENT DATE: 201209
